FAERS Safety Report 6987056 (Version 2)
Quarter: 2013Q2

REPORT INFORMATION
  Report Type: Spontaneous
  Country: US (occurrence: CA)
  Receive Date: 20090505
  Receipt Date: 20130402
  Transmission Date: 20140414
  Serious: Yes (Death)
  Sender: FDA-Public Use
  Company Number: CA-B.I. PHARMACEUTICALS,INC./RIDGEFIELD-2009-BP-05421BP

PATIENT
  Sex: Male

DRUGS (2)
  1. MIRAPEX [Suspect]
     Indication: PARKINSON^S DISEASE
     Dates: start: 20021105, end: 201109
  2. MIRAPEX [Suspect]
     Indication: RESTLESS LEGS SYNDROME

REACTIONS (4)
  - Death [Fatal]
  - Pathological gambling [Recovered/Resolved]
  - Obsessive-compulsive disorder [Unknown]
  - Hyperphagia [Unknown]
